FAERS Safety Report 9666054 (Version 1)
Quarter: 2013Q4

REPORT INFORMATION
  Report Type: Spontaneous
  Country: US (occurrence: US)
  Receive Date: 20131104
  Receipt Date: 20131104
  Transmission Date: 20140711
  Serious: No
  Sender: FDA-Public Use
  Company Number: US-PFIZER INC-2013312945

PATIENT
  Age: 79 Year
  Sex: Female
  Weight: 81.63 kg

DRUGS (6)
  1. LIPITOR [Suspect]
     Dosage: UNK
     Route: 065
  2. DIMETAPP [Suspect]
     Dosage: UNK
  3. VICODIN [Suspect]
     Dosage: UNK
  4. CODEINE [Suspect]
     Dosage: UNK
  5. CEFTIN [Suspect]
     Dosage: UNK
  6. ENTEX [Suspect]
     Dosage: UNK

REACTIONS (1)
  - Drug hypersensitivity [Unknown]
